FAERS Safety Report 4643648-1 (Version None)
Quarter: 2005Q2

REPORT INFORMATION
  Report Type: 
  Country: None (occurrence: None)
  Receive Date: 20050425
  Receipt Date: 20041018
  Transmission Date: 20051028
  Serious: No
  Sender: FDA-Public Use
  Company Number: US-BRISTOL-MYERS SQUIBB COMPANY-12735502

PATIENT
  Age: 56 Year
  Sex: Male

DRUGS (4)
  1. PARAPLATIN AQ [Suspect]
     Indication: LUNG NEOPLASM MALIGNANT
     Route: 042
     Dates: start: 20041011, end: 20041011
  2. DECADRON [Concomitant]
  3. KYTRIL [Concomitant]
  4. TAXOTERE [Concomitant]

REACTIONS (6)
  - DYSPHONIA [None]
  - FEELING HOT [None]
  - FLUSHING [None]
  - RASH [None]
  - RASH MACULAR [None]
  - THROAT TIGHTNESS [None]
